FAERS Safety Report 8123633 (Version 4)
Quarter: 2014Q1

REPORT INFORMATION
  Report Type: Spontaneous
  Country: US (occurrence: US)
  Receive Date: 20110907
  Receipt Date: 20140313
  Transmission Date: 20141002
  Serious: Yes (Other)
  Sender: FDA-Public Use
  Company Number: US-BAYER-2011-080795

PATIENT
  Age: 23 Year
  Sex: Female
  Weight: 49 kg

DRUGS (13)
  1. YAZ [Suspect]
     Indication: CONTRACEPTION
     Dosage: UNK
     Dates: start: 2005, end: 2008
  2. YASMIN [Suspect]
     Indication: CONTRACEPTION
     Dosage: UNK
     Dates: start: 2005, end: 2008
  3. VITAMIN C [ASCORBIC ACID] [Concomitant]
  4. EXCEDRIN [ACETYLSALICYLIC ACID,CAFFEINE,PARACETAMOL,SALICYLAMIDE] [Concomitant]
  5. TYLENOL [Concomitant]
     Indication: HEADACHE
  6. ALLEGRA [Concomitant]
  7. ADVIL [IBUPROFEN] [Concomitant]
     Indication: HEADACHE
  8. CENTRUM [MINERALS NOS,VITAMINS NOS] [Concomitant]
  9. HYDROCHLOROTHIAZIDE [Concomitant]
  10. ZOCOR [Concomitant]
  11. ELMIRON [Concomitant]
  12. NOREL [Concomitant]
  13. XANAX [Concomitant]
     Dosage: 0.5 MG, BID
     Dates: start: 20061130

REACTIONS (3)
  - Cholelithiasis [Unknown]
  - Hormone level abnormal [Unknown]
  - Cholecystitis chronic [None]
